FAERS Safety Report 16659632 (Version 1)
Quarter: 2019Q3

REPORT INFORMATION
  Report Type: Spontaneous
  Country: DE (occurrence: DE)
  Receive Date: 20190802
  Receipt Date: 20190802
  Transmission Date: 20191004
  Serious: Yes (Other)
  Sender: FDA-Public Use
  Company Number: DE-009507513-1907DEU015883

PATIENT
  Age: 77 Year
  Sex: Female
  Weight: 60 kg

DRUGS (6)
  1. CLOPIDOGREL [Concomitant]
     Active Substance: CLOPIDOGREL BISULFATE
  2. TRIMIPRAMINE [Concomitant]
     Active Substance: TRIMIPRAMINE
  3. TIOBLIS 10 MG/40 MG [Suspect]
     Active Substance: ATORVASTATIN CALCIUM\EZETIMIBE
     Indication: HYPERCHOLESTEROLAEMIA
     Dosage: 10 MG/40 MG DAILY
     Route: 048
     Dates: start: 20161122, end: 20190725
  4. OMEPRAZOLE. [Concomitant]
     Active Substance: OMEPRAZOLE
  5. RAMIPRIL. [Concomitant]
     Active Substance: RAMIPRIL
  6. TIOBLIS 10 MG/40 MG [Suspect]
     Active Substance: ATORVASTATIN CALCIUM\EZETIMIBE
     Indication: CORONARY ARTERY DISEASE

REACTIONS (4)
  - Pruritus genital [Unknown]
  - Dermatitis allergic [Unknown]
  - Hypersensitivity [Unknown]
  - Genital haemorrhage [Unknown]

NARRATIVE: CASE EVENT DATE: 20190725
